FAERS Safety Report 25705533 (Version 1)
Quarter: 2025Q3

REPORT INFORMATION
  Report Type: Spontaneous
  Country: US (occurrence: None)
  Receive Date: 20250819
  Receipt Date: 20250819
  Transmission Date: 20251021
  Serious: Yes (Death)
  Sender: FDA-CTU
  Company Number: None

PATIENT
  Age: 87 Year
  Sex: Female

DRUGS (2)
  1. APIXABAN [Suspect]
     Active Substance: APIXABAN
  2. APIXABAN [Concomitant]
     Active Substance: APIXABAN

REACTIONS (8)
  - Cardio-respiratory arrest [None]
  - Haemoglobin decreased [None]
  - Retroperitoneal haematoma [None]
  - Therapy interrupted [None]
  - Transfusion [None]
  - Red blood cell transfusion [None]
  - Ischaemic hepatitis [None]
  - Renal tubular necrosis [None]

NARRATIVE: CASE EVENT DATE: 20250214
